FAERS Safety Report 25088294 (Version 1)
Quarter: 2025Q1

REPORT INFORMATION
  Report Type: Report from Study
  Country: US (occurrence: US)
  Receive Date: 20250318
  Receipt Date: 20250318
  Transmission Date: 20250408
  Serious: Yes (Other)
  Sender: ALEXION PHARMACEUTICALS
  Company Number: US-AstraZeneca-CH-00824348A

PATIENT

DRUGS (1)
  1. STRENSIQ [Suspect]
     Active Substance: ASFOTASE ALFA
     Indication: Hypophosphatasia
     Route: 065

REACTIONS (18)
  - Pneumonia influenzal [Unknown]
  - Foot fracture [Unknown]
  - Exostosis [Unknown]
  - Bone cyst [Unknown]
  - Brain fog [Unknown]
  - Memory impairment [Unknown]
  - Poor quality sleep [Unknown]
  - Fatigue [Unknown]
  - Central nervous system lesion [Unknown]
  - Pineal gland cyst [Unknown]
  - Balance disorder [Unknown]
  - Dyspnoea [Unknown]
  - Decreased activity [Unknown]
  - Vision blurred [Unknown]
  - Diplopia [Unknown]
  - Muscle spasms [Unknown]
  - Tendon disorder [Unknown]
  - Joint dislocation [Unknown]
